FAERS Safety Report 7676171-0 (Version None)
Quarter: 2011Q3

REPORT INFORMATION
  Report Type: 
  Country: None (occurrence: None)
  Receive Date: 20110805
  Receipt Date: 20110729
  Transmission Date: 20111222
  Serious: Yes (Death, Hospitalization)
  Sender: FDA-Public Use
  Company Number: 2011ST000184

PATIENT

DRUGS (7)
  1. ASPIRIN [Concomitant]
  2. MAGNESIUM [Concomitant]
  3. LEVOTHYROXINE SODIUM [Concomitant]
  4. ONCASPAR [Suspect]
     Indication: OVARIAN CANCER
     Dosage: 3300 IU; X1; IV
     Route: 042
     Dates: start: 20110713, end: 20110713
  5. PANTOPRAZOLE [Concomitant]
  6. ONDANSETRON [Concomitant]
  7. PROCHLORPERAZINE [Concomitant]

REACTIONS (2)
  - PULMONARY EMBOLISM [None]
  - PLEURAL EFFUSION [None]
